FAERS Safety Report 4291405-0 (Version None)
Quarter: 2004Q1

REPORT INFORMATION
  Report Type: 
  Country: None (occurrence: None)
  Receive Date: 20040211
  Receipt Date: 20030908
  Transmission Date: 20041129
  Serious: No
  Sender: FDA-Public Use
  Company Number: US-BRISTOL-MYERS SQUIBB COMPANY-12377230

PATIENT
  Age: 42 Year
  Sex: Female
  Weight: 55 kg

DRUGS (3)
  1. TEQUIN [Suspect]
     Indication: SINUSITIS
  2. CEFZIL [Suspect]
     Indication: SINUSITIS
     Route: 048
     Dates: start: 20030728, end: 20030812
  3. SYNTHROID [Concomitant]
     Indication: THYROID DISORDER

REACTIONS (7)
  - ABDOMINAL DISTENSION [None]
  - DEPRESSED MOOD [None]
  - FATIGUE [None]
  - FLUID RETENTION [None]
  - SLEEP DISORDER [None]
  - URINE ABNORMALITY [None]
  - WEIGHT INCREASED [None]
